FAERS Safety Report 7052699-1 (Version None)
Quarter: 2010Q4

REPORT INFORMATION
  Report Type: 
  Country: None (occurrence: None)
  Receive Date: 20101012
  Receipt Date: 20101004
  Transmission Date: 20110411
  Serious: Yes (Other)
  Sender: FDA-Public Use
  Company Number: A0885289A

PATIENT
  Sex: Male

DRUGS (4)
  1. BENZOYL PEROXIDE FOAM (BENZOYL PEROXIDE) [Suspect]
     Indication: PRODUCT USED FOR UNKNOWN INDICATION
     Dosage: PER DAY / TOPICAL
     Route: 061
  2. BENZOYL PEROXIDE FOAM (BENZOYL PEROXIDE) [Suspect]
     Indication: PRODUCT USED FOR UNKNOWN INDICATION
     Dosage: PER DAY / TOPICAL
     Route: 061
  3. SALICYLIC ACID (FORMULATION UNKNOWN) (SALICYLIC ACID) [Suspect]
     Indication: PRODUCT USED FOR UNKNOWN INDICATION
     Dosage: PER DAY / TOPICAL
     Route: 061
  4. BENZOYL PEROXIDE WASH (BENZOYL PEROXIDE) [Suspect]
     Indication: PRODUCT USED FOR UNKNOWN INDICATION
     Dosage: TOPICAL
     Route: 061

REACTIONS (3)
  - ERYTHEMA [None]
  - SKIN DISORDER [None]
  - SKIN IRRITATION [None]
